FAERS Safety Report 5235828-1 (Version None)
Quarter: 2007Q1

REPORT INFORMATION
  Report Type: 
  Country: None (occurrence: None)
  Receive Date: 20070212
  Receipt Date: 20070202
  Transmission Date: 20070707
  Serious: Yes (Disabling)
  Sender: FDA-Public Use
  Company Number: GB-AVENTIS-200621914GDDC

PATIENT
  Age: 54 Year
  Sex: Male
  Weight: 89 kg

DRUGS (8)
  1. LANTUS [Suspect]
     Dosage: DOSE: DOSE INCREASED BY 2 UNITS EVERY THREE DAYS FROM 6 UNITS PER DAY TO 26 UNITS
     Route: 058
     Dates: start: 20061108, end: 20061224
  2. LANTUS [Suspect]
     Dosage: DOSE: DOSE INCREASED BY 2 UNITS EVERY THREE DAYS FROM 6 UNITS PER DAY TO 26 UNITS
     Route: 058
     Dates: start: 20061108, end: 20061224
  3. AMARYL [Concomitant]
     Route: 048
  4. AVANDIA [Concomitant]
  5. EZETIMIBE [Concomitant]
  6. LANSOPRAZOLE [Concomitant]
  7. RAMIPRIL [Concomitant]
  8. ATORVASTATIN [Concomitant]

REACTIONS (7)
  - BALANCE DISORDER [None]
  - CONFUSIONAL STATE [None]
  - DISORIENTATION [None]
  - DIZZINESS [None]
  - FATIGUE [None]
  - FEELING ABNORMAL [None]
  - SKIN EXFOLIATION [None]
